FAERS Safety Report 7318996-7 (Version None)
Quarter: 2011Q1

REPORT INFORMATION
  Report Type: 
  Country: None (occurrence: None)
  Receive Date: 20110228
  Receipt Date: 20110131
  Transmission Date: 20110831
  Serious: No
  Sender: FDA-Public Use
  Company Number: US-B.I. PHARMACEUTICALS,INC./RIDGEFIELD-2011-BP-03153BP

PATIENT
  Sex: Female

DRUGS (13)
  1. TRAZODONE [Concomitant]
     Indication: INSOMNIA
  2. NEXIUM [Concomitant]
     Indication: COELIAC DISEASE
     Dosage: 40 MG
  3. LOVAZA [Concomitant]
     Indication: BLOOD CHOLESTEROL INCREASED
     Dosage: 2 G
  4. LORAZEPAM [Concomitant]
     Indication: INSOMNIA
  5. LIPITOR [Concomitant]
     Indication: BLOOD CHOLESTEROL INCREASED
     Dosage: 20 MG
  6. SOTALOL HYDROCHLORIDE [Concomitant]
     Indication: MITRAL VALVE PROLAPSE
     Dosage: 160 MG
  7. PRADAXA [Suspect]
     Indication: ATRIAL FIBRILLATION
     Dosage: 300 MG
     Route: 048
     Dates: start: 20110120, end: 20110128
  8. CALCIUM 500 [Concomitant]
     Indication: VITAMIN SUPPLEMENTATION
     Dosage: 1500 MG
  9. ASA [Concomitant]
     Indication: CARDIAC DISORDER
     Dosage: 81 MG
  10. FLUTICASONE [Concomitant]
     Indication: RHINITIS ALLERGIC
  11. VITAMIN D [Concomitant]
     Indication: VITAMIN SUPPLEMENTATION
     Dosage: 800 U
  12. AMLODIPINE [Concomitant]
     Indication: HYPERTENSION
     Dosage: 10 MG
  13. OCUCOMPLETE C LUTEIN [Concomitant]
     Indication: MACULAR DEGENERATION

REACTIONS (2)
  - DIZZINESS POSTURAL [None]
  - GAIT DISTURBANCE [None]
